FAERS Safety Report 7826086-X (Version None)
Quarter: 2011Q4

REPORT INFORMATION
  Report Type: 
  Country: None (occurrence: None)
  Receive Date: 20111019
  Receipt Date: 20111010
  Transmission Date: 20120403
  Serious: Yes (Hospitalization, Other)
  Sender: FDA-Public Use
  Company Number: US-ASTRAZENECA-2011SE61053

PATIENT
  Age: 81 Year
  Sex: Male

DRUGS (1)
  1. NEXIUM [Suspect]
     Route: 048

REACTIONS (3)
  - WRONG DRUG ADMINISTERED [None]
  - ABDOMINAL HERNIA [None]
  - INTESTINAL PERFORATION [None]
